FAERS Safety Report 4845802-2 (Version None)
Quarter: 2005Q4

REPORT INFORMATION
  Report Type: 
  Country: None (occurrence: None)
  Receive Date: 20051202
  Receipt Date: 20051202
  Transmission Date: 20060501
  Serious: Yes (Hospitalization)
  Sender: FDA-Public Use
  Company Number: None

PATIENT
  Age: 53 Year
  Sex: Female
  Weight: 57.8 kg

DRUGS (6)
  1. STAVUDINE [Suspect]
     Indication: HIV INFECTION
     Dosage: 30MG, BID, PO
     Route: 048
     Dates: start: 20050922
  2. EFAVIRENZ [Suspect]
     Indication: HIV INFECTION
     Dosage: 600MG, QHS, PO
     Route: 048
     Dates: start: 20050922
  3. LAMIVUDINE [Suspect]
     Indication: HIV INFECTION
     Dosage: 150MG, BID, PO
     Route: 048
     Dates: start: 20050922
  4. BACTRIM [Concomitant]
  5. VITAMIN B6 [Concomitant]
  6. AMITRIPTYLINE HCL [Concomitant]

REACTIONS (10)
  - BLOOD GLUCOSE INCREASED [None]
  - CONVULSION [None]
  - CSF PROTEIN INCREASED [None]
  - GENERAL PHYSICAL HEALTH DETERIORATION [None]
  - IIIRD NERVE PARESIS [None]
  - INCONTINENCE [None]
  - MUSCULAR WEAKNESS [None]
  - NEUROMYOPATHY [None]
  - PROGRESSIVE MULTIFOCAL LEUKOENCEPHALOPATHY [None]
  - SIMPLE PARTIAL SEIZURES [None]
